FAERS Safety Report 7250333-9 (Version None)
Quarter: 2011Q1

REPORT INFORMATION
  Report Type: 
  Country: None (occurrence: None)
  Receive Date: 20110121
  Receipt Date: 20110121
  Transmission Date: 20110831
  Serious: No
  Sender: FDA-Public Use
  Company Number: None

PATIENT
  Age: 57 Year
  Sex: Female

DRUGS (2)
  1. REBAVIRON [Suspect]
     Indication: HEPATITIS C
  2. PEG-INTRON [Suspect]

REACTIONS (4)
  - PRURITUS [None]
  - DYSGEUSIA [None]
  - ECZEMA [None]
  - FATIGUE [None]
